FAERS Safety Report 9066296 (Version 1)
Quarter: 2013Q1

REPORT INFORMATION
  Report Type: Spontaneous
  Country: US (occurrence: US)
  Receive Date: 20130131
  Receipt Date: 20130131
  Transmission Date: 20140127
  Serious: No
  Sender: FDA-Public Use
  Company Number: US-ABBOTT-12P-163-1016943-00

PATIENT
  Sex: Male
  Weight: 98.97 kg

DRUGS (3)
  1. HUMIRA [Suspect]
     Indication: CROHN^S DISEASE
     Route: 058
     Dates: start: 2010
  2. B-12 SUPPLEMENT [Concomitant]
     Indication: SUPPLEMENTATION THERAPY
  3. COLESTID [Concomitant]
     Indication: BLOOD CHOLESTEROL INCREASED

REACTIONS (4)
  - Device malfunction [Unknown]
  - Incorrect dose administered [Unknown]
  - Injection site haemorrhage [Not Recovered/Not Resolved]
  - Injection site discomfort [Not Recovered/Not Resolved]
